FAERS Safety Report 5612433-6 (Version None)
Quarter: 2008Q1

REPORT INFORMATION
  Report Type: 
  Country: None (occurrence: None)
  Receive Date: 20080201
  Receipt Date: 20080201
  Transmission Date: 20080703
  Serious: No
  Sender: FDA-Public Use
  Company Number: None

PATIENT
  Age: 55 Year
  Sex: Female

DRUGS (1)
  1. BUPROPION HCL [Suspect]
     Dosage: 1 DAILY
     Dates: start: 20070413

REACTIONS (3)
  - ALOPECIA [None]
  - ILL-DEFINED DISORDER [None]
  - NAUSEA [None]
